FAERS Safety Report 11432042 (Version 1)
Quarter: 2015Q3

REPORT INFORMATION
  Report Type: Spontaneous
  Country: IT (occurrence: IT)
  Receive Date: 20150828
  Receipt Date: 20150828
  Transmission Date: 20151125
  Serious: Yes (Hospitalization, Other)
  Sender: FDA-Public Use
  Company Number: IT-BAYER-2015-405972

PATIENT
  Sex: Female

DRUGS (6)
  1. ACETYLSALICYLIC ACID({=100 MG) [Suspect]
     Active Substance: ASPIRIN
     Indication: ANTIPHOSPHOLIPID SYNDROME
  2. VITAMIN D [Concomitant]
     Active Substance: CHOLECALCIFEROL
  3. HEPARIN [Concomitant]
     Active Substance: HEPARIN SODIUM
     Dosage: 4000 UI, BID
  4. HYDROXYCHLOROQUINE [Concomitant]
     Active Substance: HYDROXYCHLOROQUINE
     Dosage: 200 MG, BID
  5. FOLIC ACID. [Concomitant]
     Active Substance: FOLIC ACID
  6. PROPANOLOL [Concomitant]
     Active Substance: PROPRANOLOL HYDROCHLORIDE
     Dosage: 20 MG, BID

REACTIONS (6)
  - Maternal exposure during pregnancy [None]
  - Off label use [None]
  - Oligohydramnios [None]
  - Premature delivery [None]
  - Placental infarction [None]
  - Foetal placental thrombosis [None]
